FAERS Safety Report 5104234-2 (Version None)
Quarter: 2006Q3

REPORT INFORMATION
  Report Type: 
  Country: None (occurrence: None)
  Receive Date: 20060911
  Receipt Date: 20060824
  Transmission Date: 20061208
  Serious: Yes (Hospitalization)
  Sender: FDA-Public Use
  Company Number: MEDI-0004754

PATIENT
  Age: 7 Month

DRUGS (7)
  1. SYNAGIS [Suspect]
     Indication: ANTIVIRAL PROPHYLAXIS
     Dosage: 60 MG, INTRAMUSCULAR (SEE IMAGE)
     Route: 030
     Dates: start: 20051012, end: 20060227
  2. SYNAGIS [Suspect]
     Indication: ANTIVIRAL PROPHYLAXIS
     Dosage: 60 MG, INTRAMUSCULAR (SEE IMAGE)
     Route: 030
     Dates: start: 20051012
  3. SYNAGIS [Suspect]
     Indication: ANTIVIRAL PROPHYLAXIS
     Dosage: 60 MG, INTRAMUSCULAR (SEE IMAGE)
     Route: 030
     Dates: start: 20051109
  4. SYNAGIS [Suspect]
     Indication: ANTIVIRAL PROPHYLAXIS
     Dosage: 60 MG, INTRAMUSCULAR (SEE IMAGE)
     Route: 030
     Dates: start: 20051130
  5. SYNAGIS [Suspect]
     Indication: ANTIVIRAL PROPHYLAXIS
     Dosage: 60 MG, INTRAMUSCULAR (SEE IMAGE)
     Route: 030
     Dates: start: 20051221
  6. SYNAGIS [Suspect]
     Indication: ANTIVIRAL PROPHYLAXIS
     Dosage: 60 MG, INTRAMUSCULAR (SEE IMAGE)
     Route: 030
     Dates: start: 20060113
  7. SYNAGIS [Suspect]
     Indication: ANTIVIRAL PROPHYLAXIS
     Dosage: 60 MG, INTRAMUSCULAR (SEE IMAGE)
     Route: 030
     Dates: start: 20060203

REACTIONS (1)
  - LARYNGITIS [None]
